FAERS Safety Report 4782450-7 (Version None)
Quarter: 2005Q3

REPORT INFORMATION
  Report Type: 
  Country: None (occurrence: None)
  Receive Date: 20050929
  Receipt Date: 20041108
  Transmission Date: 20060218
  Serious: No
  Sender: FDA-Public Use
  Company Number: 389540

PATIENT
  Age: 15 Year
  Sex: Male

DRUGS (3)
  1. COREG [Suspect]
     Indication: DRUG USE FOR UNKNOWN INDICATION
     Dosage: 25MG SINGLE DOSE
     Route: 048
  2. CYCLOSPORINE [Concomitant]
  3. ENALAPRIL [Concomitant]

REACTIONS (4)
  - CONFUSIONAL STATE [None]
  - LETHARGY [None]
  - MEDICATION ERROR [None]
  - PHARMACEUTICAL PRODUCT COMPLAINT [None]
